FAERS Safety Report 15524417 (Version 2)
Quarter: 2018Q4

REPORT INFORMATION
  Report Type: Spontaneous
  Country: FR (occurrence: FR)
  Receive Date: 20181019
  Receipt Date: 20181031
  Transmission Date: 20190205
  Serious: Yes (Hospitalization)
  Sender: FDA-Public Use
  Company Number: FR-PFIZER INC-2018414030

PATIENT
  Age: 81 Year
  Sex: Female

DRUGS (7)
  1. FLUOROURACIL. [Suspect]
     Active Substance: FLUOROURACIL
     Indication: COLORECTAL CANCER METASTATIC
     Dosage: 1680 MG/M2, CYCLIC
     Route: 042
     Dates: start: 20180816, end: 20180816
  2. ZOPHREN [ONDANSETRON HYDROCHLORIDE] [Suspect]
     Active Substance: ONDANSETRON
     Indication: PREMEDICATION
     Dosage: 8 MG, UNK
     Route: 042
     Dates: start: 20180816, end: 20180816
  3. SOLU-MEDROL [Suspect]
     Active Substance: METHYLPREDNISOLONE SODIUM SUCCINATE
     Indication: PREMEDICATION
     Dosage: 60 MG, UNK
     Route: 042
     Dates: start: 20180816, end: 20180816
  4. AVASTIN [Suspect]
     Active Substance: BEVACIZUMAB
     Indication: COLORECTAL CANCER METASTATIC
     Dosage: 5 MG/KG, CYCLIC
     Route: 042
     Dates: start: 20180816, end: 20180816
  5. POLARAMINE [Suspect]
     Active Substance: DEXCHLORPHENIRAMINE MALEATE
     Indication: PREMEDICATION
     Dosage: 5 MG, UNK
     Route: 042
     Dates: start: 20180816, end: 20180816
  6. OXALIPLATIN. [Suspect]
     Active Substance: OXALIPLATIN
     Indication: COLORECTAL CANCER METASTATIC
     Dosage: 100 MG, CYCLIC
     Route: 042
     Dates: start: 20180816, end: 20180816
  7. EMEND [Suspect]
     Active Substance: APREPITANT
     Indication: PREMEDICATION
     Dosage: 125 MG, UNK
     Route: 042
     Dates: start: 20180816, end: 20180816

REACTIONS (2)
  - Hyperthermia [Recovered/Resolved]
  - Hypertension [Recovered/Resolved]

NARRATIVE: CASE EVENT DATE: 20180816
